FAERS Safety Report 23761056 (Version 1)
Quarter: 2024Q2

REPORT INFORMATION
  Report Type: Spontaneous
  Country: US (occurrence: US)
  Receive Date: 20240419
  Receipt Date: 20240419
  Transmission Date: 20240715
  Serious: Yes (Other)
  Sender: FDA-Public Use
  Company Number: US-ORGANON-O2403USA001880

PATIENT
  Age: 22 Year
  Sex: Female
  Weight: 160.54 kg

DRUGS (1)
  1. NEXPLANON [Suspect]
     Active Substance: ETONOGESTREL
     Indication: Contraception
     Dosage: 1 IMPLANT IN RIGHT ARM, EVERY 3 YEARS
     Route: 059
     Dates: start: 20240304, end: 20240401

REACTIONS (6)
  - Device expulsion [Recovered/Resolved]
  - Medical device site discomfort [Not Recovered/Not Resolved]
  - Implant site pain [Not Recovered/Not Resolved]
  - Device placement issue [Recovered/Resolved]
  - Device issue [Recovered/Resolved]
  - Wrong technique in device usage process [Unknown]

NARRATIVE: CASE EVENT DATE: 20240304
